FAERS Safety Report 11192393 (Version 1)
Quarter: 2015Q2

REPORT INFORMATION
  Report Type: Spontaneous
  Country: US (occurrence: None)
  Receive Date: 20150612
  Receipt Date: 20150612
  Transmission Date: 20150821
  Serious: Yes (Other)
  Sender: FDA-Public Use
  Company Number: US-H14001-15-00881

PATIENT
  Age: 93 Year
  Sex: Female

DRUGS (1)
  1. CEFTRIAXONE (CEFTRIAXONE) (UNKNOWN) (CEFTRIAXONE) [Suspect]
     Active Substance: CEFTRIAXONE
     Indication: OSTEOMYELITIS BACTERIAL

REACTIONS (3)
  - Acute generalised exanthematous pustulosis [None]
  - Somnolence [None]
  - Blood glucose increased [None]
